FAERS Safety Report 11140645 (Version 1)
Quarter: 2015Q2

REPORT INFORMATION
  Report Type: Spontaneous
  Country: FR (occurrence: FR)
  Receive Date: 20150527
  Receipt Date: 20150527
  Transmission Date: 20150821
  Serious: Yes (Hospitalization, Other)
  Sender: FDA-Public Use
  Company Number: FR-ASTELLAS-2015US017953

PATIENT
  Sex: Female

DRUGS (1)
  1. BETMIGA [Suspect]
     Active Substance: MIRABEGRON
     Indication: URINARY TRACT DISORDER
     Route: 048

REACTIONS (4)
  - Pancreatitis acute [Recovering/Resolving]
  - Hypercalcaemia [Unknown]
  - Fall [Recovered/Resolved]
  - Malaise [Recovered/Resolved]
